FAERS Safety Report 9432641 (Version 1)
Quarter: 2013Q3

REPORT INFORMATION
  Report Type: Spontaneous
  Country: US (occurrence: US)
  Receive Date: 20130731
  Receipt Date: 20130731
  Transmission Date: 20140515
  Serious: No
  Sender: FDA-Public Use
  Company Number: US-PFIZER INC-2013219064

PATIENT
  Age: 83 Year
  Sex: Female
  Weight: 53.06 kg

DRUGS (7)
  1. TOVIAZ [Suspect]
     Indication: HYPERTONIC BLADDER
     Dosage: 4 MG, 1X/DAY
     Route: 048
     Dates: start: 20130625, end: 20130723
  2. ESTRADIOL [Concomitant]
     Dosage: 0.5 MG, 1X/DAY
  3. GABAPENTIN [Concomitant]
     Dosage: 300 MG, 3X/DAY
  4. BACLOFEN [Concomitant]
     Dosage: 100 MG, 1X/DAY
  5. SERTRALINE [Concomitant]
     Dosage: 100 MG, 1X/DAY
  6. MOBIC [Concomitant]
     Dosage: 15 MG, 1X/DAY
  7. NEXIUM [Concomitant]
     Dosage: UNK

REACTIONS (5)
  - Vision blurred [Not Recovered/Not Resolved]
  - Swollen tongue [Not Recovered/Not Resolved]
  - Glossodynia [Not Recovered/Not Resolved]
  - Scoliosis [Not Recovered/Not Resolved]
  - Hypertonic bladder [Not Recovered/Not Resolved]
